FAERS Safety Report 6425547-8 (Version None)
Quarter: 2009Q4

REPORT INFORMATION
  Report Type: 
  Country: None (occurrence: None)
  Receive Date: 20091103
  Receipt Date: 20091023
  Transmission Date: 20100525
  Serious: Yes (Other)
  Sender: FDA-Public Use
  Company Number: US-JNJFOC-20091008558

PATIENT
  Age: 72 Year
  Sex: Female
  Weight: 54.43 kg

DRUGS (3)
  1. TYLENOL SINUS CONGESTION + PAIN NIGHTTIME COOL BURST [Suspect]
     Indication: CHRONIC SINUSITIS
     Dosage: ONE CAPLET DAILY AS NEEDED FOR YEARS
     Route: 048
  2. TYLENOL SINUS CONGESTION + PAIN DAYTIME RAPID RELEASE [Suspect]
     Indication: CHRONIC SINUSITIS
     Dosage: ONE GELCAP DAILY AS NEEDED FOR YEARS
     Route: 048
  3. TRIAM-CO [Concomitant]
     Indication: HYPERTENSION
     Dosage: 37.5/25MG

REACTIONS (3)
  - BLOOD PRESSURE INCREASED [None]
  - EPISTAXIS [None]
  - EYE HAEMORRHAGE [None]
